FAERS Safety Report 22073849 (Version 1)
Quarter: 2023Q1

REPORT INFORMATION
  Report Type: Spontaneous
  Country: GB (occurrence: GB)
  Receive Date: 20230308
  Receipt Date: 20230308
  Transmission Date: 20230418
  Serious: Yes (Life-Threatening, Disabling, Other)
  Sender: FDA-Public Use
  Company Number: GB-MHRA-MED-202303052234245320-PTCDM

PATIENT
  Age: 39 Year
  Sex: Male
  Weight: 74 kg

DRUGS (2)
  1. FINASTERIDE [Suspect]
     Active Substance: FINASTERIDE
     Indication: Product used for unknown indication
     Dosage: UNK
     Route: 065
     Dates: start: 2018
  2. FINASTERIDE [Suspect]
     Active Substance: FINASTERIDE
     Dosage: UNK(START DATE: 2020)
     Route: 065
     Dates: end: 2022

REACTIONS (4)
  - Psychosexual disorder [Recovered/Resolved]
  - Suicidal ideation [Recovered/Resolved]
  - Major depression [Recovering/Resolving]
  - Medication error [Unknown]

NARRATIVE: CASE EVENT DATE: 20200601
